FAERS Safety Report 8431394-8 (Version None)
Quarter: 2012Q2

REPORT INFORMATION
  Report Type: 
  Country: None (occurrence: None)
  Receive Date: 20120605
  Receipt Date: 20120521
  Transmission Date: 20120825
  Serious: Yes (Hospitalization, Other)
  Sender: FDA-Public Use
  Company Number: 2012MA006622

PATIENT
  Age: 31 Week
  Sex: Male
  Weight: 1.35 kg

DRUGS (5)
  1. CALCIUM REPLACEMENT [Concomitant]
  2. NETILMICIN SULFATE [Concomitant]
  3. FLUCONASOLE [Concomitant]
  4. AMPICILLIN [Concomitant]
  5. IBUPROFEN [Suspect]
     Indication: PATENT DUCTUS ARTERIOSUS
     Dosage: 10 MG/KG;Q24H; IV
     Route: 042

REACTIONS (4)
  - TACHYCARDIA [None]
  - HAEMOGLOBIN DECREASED [None]
  - GASTROINTESTINAL HAEMORRHAGE [None]
  - HYPOTONIA [None]
